FAERS Safety Report 21318869 (Version 1)
Quarter: 2022Q3

REPORT INFORMATION
  Report Type: Spontaneous
  Country: US (occurrence: US)
  Receive Date: 20220911
  Receipt Date: 20220911
  Transmission Date: 20221027
  Serious: No
  Sender: FDA-Public Use
  Company Number: US-SA-SAC20220831000348

PATIENT
  Sex: Female
  Weight: 28.1 kg

DRUGS (8)
  1. DUPIXENT [Suspect]
     Active Substance: DUPILUMAB
     Indication: Eosinophilic oesophagitis
     Dosage: 300 MG, QW
     Route: 058
  2. FISH OIL [Concomitant]
     Active Substance: FISH OIL
  3. ZINC [Concomitant]
     Active Substance: ZINC
  4. AMITIZA [Concomitant]
     Active Substance: LUBIPROSTONE
  5. FLOVENT HFA [Concomitant]
     Active Substance: FLUTICASONE PROPIONATE
  6. LAMICTAL [Concomitant]
     Active Substance: LAMOTRIGINE
  7. OMEPRAZOLE [Concomitant]
     Active Substance: OMEPRAZOLE
  8. AUSTEDO [Concomitant]
     Active Substance: DEUTETRABENAZINE

REACTIONS (4)
  - Injection site pain [Unknown]
  - Injection site erythema [Recovered/Resolved]
  - Injection site swelling [Unknown]
  - Injection site bruising [Unknown]
